FAERS Safety Report 21591881 (Version 1)
Quarter: 2022Q4

REPORT INFORMATION
  Report Type: Spontaneous
  Country: RU (occurrence: RU)
  Receive Date: 20221114
  Receipt Date: 20221114
  Transmission Date: 20230113
  Serious: Yes (Death)
  Sender: FDA-Public Use
  Company Number: RU-002147023-NVSC2022RU256199

PATIENT
  Age: 27 Year
  Sex: Female

DRUGS (5)
  1. MIDOSTAURIN [Suspect]
     Active Substance: MIDOSTAURIN
     Indication: Acute monocytic leukaemia
     Dosage: 100 MG, QD
     Route: 065
     Dates: start: 20220824, end: 20220826
  2. MIDOSTAURIN [Suspect]
     Active Substance: MIDOSTAURIN
     Dosage: 100 MG, QD
     Route: 065
     Dates: start: 20221008, end: 20221013
  3. CYTARABINE [Concomitant]
     Active Substance: CYTARABINE
     Indication: Product used for unknown indication
     Dosage: UNK (200 MG/M2=40 0 MG, ON DAYS 1-7)
     Route: 065
     Dates: start: 20220817, end: 20220824
  4. CYTARABINE [Concomitant]
     Active Substance: CYTARABINE
     Dosage: UNK, BID (100 MG/M=200 MG, ON DAYS 1-7)
     Route: 065
     Dates: start: 20221001, end: 20221008
  5. DAUNORUBICIN [Concomitant]
     Active Substance: DAUNORUBICIN
     Indication: Product used for unknown indication
     Dosage: UNK (60 MG/M2= 120 MG, ON DAYS 1-3 MAINTENANCE CHEMOTHERAPY))
     Route: 065

REACTIONS (2)
  - Cardiac failure acute [Fatal]
  - Septic shock [Fatal]
